FAERS Safety Report 5040878-4 (Version None)
Quarter: 2006Q2

REPORT INFORMATION
  Report Type: 
  Country: None (occurrence: None)
  Receive Date: 20060629
  Receipt Date: 20060629
  Transmission Date: 20061013
  Serious: Yes (Life-Threatening, Other)
  Sender: FDA-Public Use
  Company Number: None

PATIENT
  Sex: Female
  Weight: 79.3795 kg

DRUGS (9)
  1. ARAVA [Suspect]
     Indication: RHEUMATOID ARTHRITIS
     Dosage: 20 MG ONCE DAILY PO
     Route: 048
     Dates: start: 20050115, end: 20060115
  2. LEFLUNOMIDE [Suspect]
     Indication: RHEUMATOID ARTHRITIS
     Dosage: 20 MG ONCE DAILY PO
     Route: 048
     Dates: start: 20060115, end: 20060628
  3. HUMALOG [Concomitant]
  4. LANTUS [Concomitant]
  5. ZOCOR [Concomitant]
  6. ZOLOFT [Concomitant]
  7. ALLEGRA [Concomitant]
  8. PATANOL [Concomitant]
  9. CALTRATE-VITAMIN D + CALCIUM [Concomitant]

REACTIONS (3)
  - BLOOD GLUCOSE DECREASED [None]
  - THERAPEUTIC RESPONSE UNEXPECTED [None]
  - YAWNING [None]
